FAERS Safety Report 21861387 (Version 1)
Quarter: 2023Q1

REPORT INFORMATION
  Report Type: Report from Study
  Country: EG (occurrence: EG)
  Receive Date: 20230113
  Receipt Date: 20230113
  Transmission Date: 20230417
  Serious: Yes (Other)
  Sender: FDA-Public Use
  Company Number: EG-002147023-NVSC2023EG006879

PATIENT
  Age: 11 Year
  Sex: Female

DRUGS (4)
  1. OMNITROPE [Suspect]
     Active Substance: SOMATROPIN
     Indication: Growth hormone deficiency
     Dosage: 1.1 MG, QD
     Route: 058
     Dates: start: 202103, end: 2021
  2. OMNITROPE [Suspect]
     Active Substance: SOMATROPIN
     Indication: Short stature
  3. OSSOFORTIN [Concomitant]
     Indication: Supplementation therapy
     Dosage: 1 DOSAGE FORM, DAY AFTER DAY ONE TIME PER DAY
     Route: 065
  4. OMEGA 3 [Concomitant]
     Active Substance: CAPSAICIN
     Indication: Supplementation therapy
     Dosage: 1 DOSAGE FORM, TABLET /DAY OR DAY AFTER DA
     Route: 065

REACTIONS (3)
  - Spinal deformity [Unknown]
  - Back pain [Unknown]
  - Drug ineffective [Recovered/Resolved]

NARRATIVE: CASE EVENT DATE: 20210320
